FAERS Safety Report 10396658 (Version 1)
Quarter: 2014Q1

REPORT INFORMATION
  Report Type: Spontaneous
  Country: US (occurrence: None)
  Receive Date: 20130815
  Receipt Date: 20130815
  Transmission Date: 20141002
  Serious: Yes (Other)
  Sender: FDA-Public Use
  Company Number: ADR-2012-01184

PATIENT
  Sex: Female

DRUGS (1)
  1. LIORESAL INTRATHECAL(BACLOFEN INJECTION) 500 MCG/ML [Suspect]
     Indication: MUSCLE SPASTICITY
     Dosage: SEE B5

REACTIONS (3)
  - Urinary retention postoperative [None]
  - Muscle spasticity [None]
  - Therapeutic response decreased [None]
